FAERS Safety Report 23558140 (Version 1)
Quarter: 2024Q1

REPORT INFORMATION
  Report Type: Spontaneous
  Country: MW (occurrence: MW)
  Receive Date: 20240223
  Receipt Date: 20240223
  Transmission Date: 20240410
  Serious: Yes (Death)
  Sender: FDA-Public Use
  Company Number: MW-Accord-408018

PATIENT
  Sex: Male

DRUGS (5)
  1. PACLITAXEL [Suspect]
     Active Substance: PACLITAXEL
     Indication: Kaposi^s sarcoma
     Dosage: 100 MG/M2 BSA (BODY SURFACE AREA)
     Dates: start: 202101, end: 202112
  2. DEXAMETHASONE [Concomitant]
     Active Substance: DEXAMETHASONE
  3. METOCLOPRAMIDE [Concomitant]
     Active Substance: METOCLOPRAMIDE
  4. CHLORPHENIRAMINE MALEATE [Concomitant]
     Active Substance: CHLORPHENIRAMINE MALEATE
  5. ACETAMINOPHEN [Concomitant]
     Active Substance: ACETAMINOPHEN
     Indication: Pain
     Dosage: TAKE-HOME MEDICATION, TO BE TAKEN AS NEEDED

REACTIONS (1)
  - Anaemia [Fatal]
